FAERS Safety Report 5047439-1 (Version None)
Quarter: 2006Q3

REPORT INFORMATION
  Report Type: 
  Country: None (occurrence: None)
  Receive Date: 20060710
  Receipt Date: 20060710
  Transmission Date: 20061208
  Serious: Yes (Hospitalization)
  Sender: FDA-Public Use
  Company Number: None

PATIENT
  Age: 63 Year
  Sex: Male

DRUGS (15)
  1. HEPARIN [Suspect]
     Indication: THROMBOSIS PROPHYLAXIS
     Dosage: 5000 UNITS SQQ12H
     Route: 058
     Dates: start: 20060623, end: 20060625
  2. PIPERACILLIN AND TAZOBACTAM [Suspect]
     Indication: WOUND INFECTION
     Dosage: 3.375GM IV Q6H
     Route: 042
     Dates: start: 20060621, end: 20060626
  3. ACETAMINOPHEN [Concomitant]
  4. ASCORBIC ACID [Concomitant]
  5. CLOTRIMAZOLE [Concomitant]
  6. CYANOCOBALAMIN [Concomitant]
  7. ENALAPRIL MALEATE [Concomitant]
  8. ETODOLAC [Concomitant]
  9. FERROUS SULFATE TAB [Concomitant]
  10. MAGNESIUM HYDROXIDE TAB [Concomitant]
  11. METHYLCELLULOSE [Concomitant]
  12. METOPROLOL TARTRATE [Concomitant]
  13. NEOSPORIN [Concomitant]
  14. OXYCODONE AND ACETAMINOPHEN [Concomitant]
  15. PENTOXIFYLLINE [Concomitant]

REACTIONS (3)
  - ANTIBODY TEST POSITIVE [None]
  - HEPARIN-INDUCED THROMBOCYTOPENIA TEST [None]
  - THROMBOCYTOPENIA [None]
